FAERS Safety Report 5631602-2 (Version None)
Quarter: 2008Q1

REPORT INFORMATION
  Report Type: 
  Country: None (occurrence: None)
  Receive Date: 20080212
  Receipt Date: 20080124
  Transmission Date: 20080703
  Serious: Yes (Disabling)
  Sender: FDA-Public Use
  Company Number: M-08-0081

PATIENT
  Age: 49 Year
  Sex: Male

DRUGS (4)
  1. AMIODARONE HCL [Suspect]
     Indication: ATRIAL FIBRILLATION
     Dosage: 250 MG QD PO
     Route: 048
     Dates: start: 20060801, end: 20061223
  2. COUMADIN [Concomitant]
  3. COREG [Concomitant]
  4. DIGOXIN [Concomitant]

REACTIONS (1)
  - RETINOPATHY [None]
